FAERS Safety Report 8213076-0 (Version None)
Quarter: 2012Q1

REPORT INFORMATION
  Report Type: 
  Country: None (occurrence: None)
  Receive Date: 20120315
  Receipt Date: 20120305
  Transmission Date: 20120608
  Serious: Yes (Hospitalization, Other)
  Sender: FDA-Public Use
  Company Number: US-ABBOTT-12P-163-0914767-00

PATIENT
  Sex: Female
  Weight: 59.02 kg

DRUGS (8)
  1. SYNTHROID [Suspect]
     Indication: HYPOTHYROIDISM
     Route: 048
     Dates: start: 19840101
  2. ASCORBIC ACID [Concomitant]
     Indication: VITAMIN SUPPLEMENTATION
  3. SYNTHROID [Suspect]
     Dates: start: 19990101
  4. SYNTHROID [Suspect]
     Route: 048
     Dates: start: 19840101, end: 19990101
  5. FEMHRT [Concomitant]
     Indication: HORMONE REPLACEMENT THERAPY
  6. ACIDOPHILUS [Concomitant]
     Indication: PRODUCT USED FOR UNKNOWN INDICATION
  7. FOLIC ACID [Concomitant]
     Indication: VITAMIN SUPPLEMENTATION
  8. SYNTHROID [Suspect]
     Dates: start: 20120201

REACTIONS (21)
  - PRODUCT FORMULATION ISSUE [None]
  - SKIN DISCOLOURATION [None]
  - PAIN [None]
  - OVERDOSE [None]
  - REACTION TO AZO-DYES [None]
  - CONVULSION [None]
  - INSOMNIA [None]
  - FEELING JITTERY [None]
  - HYPERHIDROSIS [None]
  - INFERTILITY FEMALE [None]
  - LOSS OF CONSCIOUSNESS [None]
  - TREMOR [None]
  - HEADACHE [None]
  - FEELING ABNORMAL [None]
  - GOITRE [None]
  - VOMITING [None]
  - SWELLING FACE [None]
  - MALAISE [None]
  - INCORRECT DOSE ADMINISTERED [None]
  - LACTATION DISORDER [None]
  - BLOOD SODIUM DECREASED [None]
